FAERS Safety Report 7078712-3 (Version None)
Quarter: 2010Q4

REPORT INFORMATION
  Report Type: 
  Country: None (occurrence: None)
  Receive Date: 20101102
  Receipt Date: 20101018
  Transmission Date: 20110411
  Serious: Yes (Other)
  Sender: FDA-Public Use
  Company Number: BR-AMGEN-QUU424784

PATIENT

DRUGS (6)
  1. GRANULOKINE [Suspect]
     Indication: HEPATITIS C
     Dosage: UNK UNK, QWK
     Dates: start: 20091101, end: 20100701
  2. PEGINTERFERON ALFA-2A [Suspect]
     Indication: HEPATITIS C
     Dosage: UNK UNK, QWK
     Route: 042
     Dates: start: 20091101
  3. AMOXICILLIN [Suspect]
     Dosage: 1500 MG, UNK
     Route: 048
     Dates: start: 20100601, end: 20100601
  4. RIBAVIRIN [Concomitant]
     Dosage: UNK UNK, UNK
     Dates: start: 20091120
  5. PANTOPRAZOLE [Concomitant]
     Dosage: UNK UNK, UNK
     Dates: start: 20100601
  6. LOSARTAN POTASSIUM [Concomitant]
     Dosage: UNK UNK, UNK
     Dates: start: 20100101

REACTIONS (19)
  - ALANINE AMINOTRANSFERASE INCREASED [None]
  - ASPARTATE AMINOTRANSFERASE INCREASED [None]
  - ASTHENIA [None]
  - BLOOD URIC ACID INCREASED [None]
  - COUGH [None]
  - DEPRESSED MOOD [None]
  - DRUG INEFFECTIVE [None]
  - DYSPNOEA [None]
  - FATIGUE [None]
  - GAMMA-GLUTAMYLTRANSFERASE INCREASED [None]
  - HYPERGLYCAEMIA [None]
  - MALAISE [None]
  - NERVOUSNESS [None]
  - NEUTROPHIL COUNT DECREASED [None]
  - OCULAR HYPERAEMIA [None]
  - PRURITUS [None]
  - SKIN INJURY [None]
  - SKIN LESION [None]
  - VOMITING [None]
